FAERS Safety Report 8931107 (Version 2)
Quarter: 2012Q4

REPORT INFORMATION
  Report Type: Report from Study
  Country: JP (occurrence: JP)
  Receive Date: 20121128
  Receipt Date: 20121228
  Transmission Date: 20130627
  Serious: Yes (Hospitalization)
  Sender: FDA-Public Use
  Company Number: JP-VERTEX PHARMACEUTICAL INC.-AE-2012-011429

PATIENT
  Age: 60 Year
  Sex: Male

DRUGS (15)
  1. VX-950 (TELAPREVIR) [Suspect]
     Indication: CHRONIC HEPATITIS C
     Dosage: 2250 mg, qd
     Route: 048
     Dates: start: 20120314, end: 20120324
  2. VX-950 (TELAPREVIR) [Suspect]
     Dosage: 1500 mg, qd
     Route: 048
     Dates: start: 20120425, end: 20120605
  3. PEGINTERFERON ALFA-2B [Suspect]
     Indication: CHRONIC HEPATITIS C
     Dosage: 1.5 ?g/kg, qw
     Route: 058
     Dates: start: 20120314, end: 20120403
  4. PEGINTERFERON ALFA-2B [Suspect]
     Dosage: 50 ?g, qw
     Route: 058
     Dates: start: 20120404, end: 20120417
  5. PEGINTERFERON ALFA-2B [Suspect]
     Dosage: 1.5 ?g/kg, qw
     Route: 058
     Dates: start: 20120418
  6. RIBAVIRIN [Suspect]
     Indication: CHRONIC HEPATITIS C
     Dosage: 600 mg, qd
     Route: 048
     Dates: start: 20120314, end: 20120410
  7. RIBAVIRIN [Suspect]
     Dosage: 400 mg, qd
     Route: 048
     Dates: start: 20120411, end: 20120417
  8. RIBAVIRIN [Suspect]
     Dosage: 200 mg, qd
     Route: 048
     Dates: start: 20120418, end: 20120612
  9. RIBAVIRIN [Suspect]
     Dosage: 400 mg, qd
     Route: 048
     Dates: start: 20120613
  10. FERROMIA /00023516/ [Concomitant]
     Dosage: 50 mg, qd
     Route: 048
     Dates: end: 20120605
  11. LOBU [Concomitant]
     Dosage: UNK, prn
     Route: 048
     Dates: start: 20120314
  12. SEFTAC [Concomitant]
     Dosage: 150 mg, qd
     Route: 048
     Dates: start: 20120318
  13. PRIMPERAN [Concomitant]
     Dosage: 15 mg, qd
     Route: 048
     Dates: start: 20120318
  14. RINDERON-VG [Concomitant]
     Dosage: UNK, qd
     Route: 061
     Dates: start: 20120418
  15. CLARITIN                           /00917501/ [Concomitant]
     Dosage: 10 mg, qd
     Route: 048
     Dates: end: 20120605

REACTIONS (1)
  - Fall [Unknown]
